FAERS Safety Report 6764280-X (Version None)
Quarter: 2010Q2

REPORT INFORMATION
  Report Type: 
  Country: None (occurrence: None)
  Receive Date: 20100608
  Receipt Date: 20100531
  Transmission Date: 20101027
  Serious: Yes (Life-Threatening)
  Sender: FDA-Public Use
  Company Number: 1000014265

PATIENT
  Age: 71 Year
  Sex: Female

DRUGS (4)
  1. ESCITALOPRAM [Suspect]
     Indication: DEPRESSION
     Dosage: 5 MG (5 MG, 1 IN 1 D), ORAL
     Route: 048
     Dates: end: 20100525
  2. CENTYL MED KALIUMKLORID (TABLETS) [Suspect]
     Indication: HYPERTENSION
     Dosage: ORAL
     Route: 048
     Dates: start: 20070101, end: 20100525
  3. MIRTAZAPINE [Suspect]
     Indication: DEPRESSION
     Dosage: 15 MG, ORAL
     Route: 048
     Dates: end: 20100525
  4. SEROQUEL [Concomitant]

REACTIONS (2)
  - DRUG INTERACTION [None]
  - HYPONATRAEMIA [None]
